FAERS Safety Report 8522285-2 (Version None)
Quarter: 2012Q3

REPORT INFORMATION
  Report Type: 
  Country: None (occurrence: None)
  Receive Date: 20120719
  Receipt Date: 20120717
  Transmission Date: 20120928
  Serious: Yes (Other)
  Sender: FDA-Public Use
  Company Number: PHHY2012CH061313

PATIENT
  Age: 25 Year
  Sex: Male

DRUGS (1)
  1. AREDIA [Suspect]
     Dosage: 60 MG UNK
     Route: 042
     Dates: start: 20091201

REACTIONS (5)
  - DEPRESSED LEVEL OF CONSCIOUSNESS [None]
  - SKIN BURNING SENSATION [None]
  - UVEITIS [None]
  - VISION BLURRED [None]
  - MUSCULOSKELETAL PAIN [None]
